FAERS Safety Report 7535001-8 (Version None)
Quarter: 2011Q2

REPORT INFORMATION
  Report Type: 
  Country: None (occurrence: None)
  Receive Date: 20110609
  Receipt Date: 20110531
  Transmission Date: 20111010
  Serious: No
  Sender: FDA-Public Use
  Company Number: US-BIOGENIDEC-2010BI034022

PATIENT
  Age: 42 Year
  Sex: Male

DRUGS (4)
  1. BACLOFEN [Concomitant]
     Indication: MUSCLE SPASTICITY
     Dates: start: 20080101
  2. REBIF [Concomitant]
     Indication: MULTIPLE SCLEROSIS
  3. TYSABRI [Suspect]
     Indication: MULTIPLE SCLEROSIS
     Route: 042
     Dates: start: 20090827
  4. BACLOFEN [Concomitant]
     Indication: MUSCULOSKELETAL STIFFNESS
     Dates: start: 20080101

REACTIONS (3)
  - BALANCE DISORDER [None]
  - BONE DENSITY DECREASED [None]
  - VITAMIN D DEFICIENCY [None]
